FAERS Safety Report 4439281-7 (Version None)
Quarter: 2004Q3

REPORT INFORMATION
  Report Type: 
  Country: None (occurrence: None)
  Receive Date: 20040831
  Receipt Date: 20040816
  Transmission Date: 20050211
  Serious: Yes (Hospitalization)
  Sender: FDA-Public Use
  Company Number: 03P-163-0237327-00

PATIENT
  Age: 70 Year
  Sex: Female
  Weight: 69 kg

DRUGS (10)
  1. HUMIRA [Suspect]
     Indication: RHEUMATOID ARTHRITIS
     Dosage: 1 IN 2 WK, SUBCUTANEOUS
     Route: 058
     Dates: start: 20010606, end: 20031015
  2. METHOTREXATE [Concomitant]
  3. NAPROXEN [Concomitant]
  4. FOLIC ACID [Concomitant]
  5. CALCIUM CARBONATE [Concomitant]
  6. THYROID TAB [Concomitant]
  7. ESOMEPRAZOLE [Concomitant]
  8. PRINZIDE [Concomitant]
  9. CONJUGATED ESTROGEN [Concomitant]
  10. ZESTORETIC [Concomitant]

REACTIONS (30)
  - ABDOMINAL DISTENSION [None]
  - AORTIC STENOSIS [None]
  - BLOOD PRESSURE SYSTOLIC INCREASED [None]
  - CARDIAC FAILURE CONGESTIVE [None]
  - CARDIAC MURMUR [None]
  - CHOLELITHIASIS [None]
  - COMPUTERISED TOMOGRAM ABNORMAL [None]
  - CONDITION AGGRAVATED [None]
  - CULTURE URINE POSITIVE [None]
  - CULTURE WOUND POSITIVE [None]
  - DRUG INEFFECTIVE [None]
  - DYSPHAGIA [None]
  - EARLY SATIETY [None]
  - ECHOCARDIOGRAM ABNORMAL [None]
  - ESCHERICHIA INFECTION [None]
  - FATIGUE [None]
  - FLUID OVERLOAD [None]
  - GASTROINTESTINAL CANCER METASTATIC [None]
  - GASTROINTESTINAL STROMAL TUMOUR [None]
  - MYOCARDIAL INFARCTION [None]
  - NECROSIS [None]
  - NIGHT SWEATS [None]
  - ORAL CANDIDIASIS [None]
  - OXYGEN SATURATION DECREASED [None]
  - POSTOPERATIVE INFECTION [None]
  - RENAL CELL CARCINOMA STAGE UNSPECIFIED [None]
  - RESPIRATORY RATE INCREASED [None]
  - SUPRAVENTRICULAR EXTRASYSTOLES [None]
  - WEIGHT DECREASED [None]
  - WOUND INFECTION [None]
